FAERS Safety Report 7493713-9 (Version None)
Quarter: 2011Q2

REPORT INFORMATION
  Report Type: 
  Country: None (occurrence: None)
  Receive Date: 20110520
  Receipt Date: 20110510
  Transmission Date: 20111010
  Serious: Yes (Hospitalization)
  Sender: FDA-Public Use
  Company Number: DE-TEVA-281656GER

PATIENT
  Sex: Female

DRUGS (3)
  1. PREDNISOLONE [Suspect]
     Indication: RHEUMATOID ARTHRITIS
     Dosage: 10 MILLIGRAM;
     Route: 048
  2. ARAVA [Suspect]
     Indication: RHEUMATOID ARTHRITIS
     Dosage: 20 MILLIGRAM;
     Route: 048
  3. ORENCIA [Suspect]
     Indication: RHEUMATOID ARTHRITIS
     Dosage: 16.6667 MILLIGRAM;
     Route: 042

REACTIONS (1)
  - DEVICE RELATED INFECTION [None]
